FAERS Safety Report 5191385-X (Version None)
Quarter: 2006Q4

REPORT INFORMATION
  Report Type: 
  Country: None (occurrence: None)
  Receive Date: 20061226
  Receipt Date: 20020925
  Transmission Date: 20070319
  Serious: Yes (Hospitalization)
  Sender: FDA-Public Use
  Company Number: FR-MERCK-0209USA02595

PATIENT
  Age: 60 Year
  Sex: Female

DRUGS (2)
  1. MODURETIC 5-50 [Suspect]
     Route: 048
     Dates: start: 19980101, end: 20020717
  2. ALDOMET [Suspect]
     Route: 048
     Dates: start: 19980101, end: 20020717

REACTIONS (2)
  - MYALGIA [None]
  - RHABDOMYOLYSIS [None]
